FAERS Safety Report 6590475-4 (Version None)
Quarter: 2010Q1

REPORT INFORMATION
  Report Type: 
  Country: None (occurrence: None)
  Receive Date: 20100219
  Receipt Date: 20100216
  Transmission Date: 20100710
  Serious: Yes (Death)
  Sender: FDA-Public Use
  Company Number: GB-SANOFI-AVENTIS-2010SA009417

PATIENT
  Sex: Male

DRUGS (5)
  1. OXALIPLATIN [Suspect]
     Route: 041
     Dates: start: 20100101, end: 20100101
  2. OXALIPLATIN [Suspect]
     Route: 041
  3. AVASTIN [Suspect]
     Route: 065
     Dates: start: 20100101, end: 20100101
  4. AVASTIN [Suspect]
     Route: 065
  5. CAPECITABINE [Suspect]
     Route: 065
     Dates: start: 20100101

REACTIONS (2)
  - DEATH [None]
  - SEPSIS [None]
